FAERS Safety Report 9334787 (Version 2)
Quarter: 2013Q4

REPORT INFORMATION
  Report Type: Spontaneous
  Country: US (occurrence: US)
  Receive Date: 20130606
  Receipt Date: 20131008
  Transmission Date: 20140711
  Serious: No
  Sender: FDA-Public Use
  Company Number: US-AMGEN-USASP2013031180

PATIENT
  Sex: Female

DRUGS (6)
  1. PROLIA [Suspect]
     Indication: OSTEOPOROSIS POSTMENOPAUSAL
     Dosage: 60 MG, UNK
     Route: 058
     Dates: start: 20130501
  2. TRAMADOL [Concomitant]
     Indication: PAIN
     Dosage: 50 MG, QD
     Route: 048
  3. MULTIVITAMIN                       /00097801/ [Concomitant]
  4. VITAMIN D                          /00107901/ [Concomitant]
  5. CALCIUM [Concomitant]
  6. VITAMIN B [Concomitant]

REACTIONS (8)
  - Hyperhidrosis [Unknown]
  - Pyrexia [Recovering/Resolving]
  - Nausea [Recovering/Resolving]
  - Headache [Recovering/Resolving]
  - Nervousness [Unknown]
  - Feeling jittery [Unknown]
  - Tremor [Unknown]
  - Asthenia [Unknown]
